FAERS Safety Report 5500750-X (Version None)
Quarter: 2007Q4

REPORT INFORMATION
  Report Type: 
  Country: None (occurrence: None)
  Receive Date: 20071019
  Receipt Date: 20070625
  Transmission Date: 20080405
  Serious: Yes (Other)
  Sender: FDA-Public Use
  Company Number: HQWYE824427JUN07

PATIENT
  Age: 57 Year
  Sex: Male
  Weight: 87.62 kg

DRUGS (4)
  1. ADVIL PM [Suspect]
     Indication: HEADACHE
     Dosage: 1 CAPSULE, ORAL
     Route: 048
     Dates: start: 20070601, end: 20070601
  2. ADVIL PM [Suspect]
     Indication: INSOMNIA
     Dosage: 1 CAPSULE, ORAL
     Route: 048
     Dates: start: 20070601, end: 20070601
  3. ZOLOFT [Concomitant]
  4. VYTORIN [Concomitant]

REACTIONS (3)
  - GLOSSODYNIA [None]
  - ORAL DISCOMFORT [None]
  - PHARMACEUTICAL PRODUCT COMPLAINT [None]
